FAERS Safety Report 21416510 (Version 1)
Quarter: 2022Q4

REPORT INFORMATION
  Report Type: Spontaneous
  Country: FR (occurrence: FR)
  Receive Date: 20221006
  Receipt Date: 20221006
  Transmission Date: 20230113
  Serious: Yes (Hospitalization)
  Sender: FDA-Public Use
  Company Number: None

PATIENT
  Age: 15 Year
  Sex: Female
  Weight: 55 kg

DRUGS (2)
  1. FLUOXETINE [Suspect]
     Active Substance: FLUOXETINE HYDROCHLORIDE
     Indication: Intentional overdose
     Dosage: UNIT DOSE: 140 MG, DURATION 1 DAY
     Route: 065
     Dates: start: 20220804, end: 20220804
  2. CYAMEMAZINE [Suspect]
     Active Substance: CYAMEMAZINE
     Indication: Intentional overdose
     Dosage: STRENGTH: 40 MG/ML, UNIT DOSE: 60 ML, DURATION 1 DAY
     Dates: start: 20220804, end: 20220804

REACTIONS (3)
  - Poisoning deliberate [Recovered/Resolved]
  - Tachycardia [Recovered/Resolved]
  - Coma [Recovered/Resolved]

NARRATIVE: CASE EVENT DATE: 20220804
